FAERS Safety Report 8002575-2 (Version None)
Quarter: 2011Q4

REPORT INFORMATION
  Report Type: 
  Country: None (occurrence: None)
  Receive Date: 20111222
  Receipt Date: 20111221
  Transmission Date: 20120403
  Serious: Yes (Other)
  Sender: FDA-Public Use
  Company Number: US-SHIONOGI, INC-2011000277

PATIENT

DRUGS (1)
  1. EPINEPHRINE [Suspect]
     Dosage: UNK

REACTIONS (2)
  - MEDICATION ERROR [None]
  - PRODUCT QUALITY ISSUE [None]
